FAERS Safety Report 12575610 (Version 3)
Quarter: 2017Q2

REPORT INFORMATION
  Report Type: Spontaneous
  Country: JP (occurrence: JP)
  Receive Date: 20160720
  Receipt Date: 20170428
  Transmission Date: 20170830
  Serious: Yes (Other)
  Sender: FDA-Public Use
  Company Number: JP-ELI_LILLY_AND_COMPANY-JP201607006586

PATIENT
  Age: 75 Year
  Sex: Male

DRUGS (14)
  1. LOXONIN [Concomitant]
     Active Substance: LOXOPROFEN SODIUM
     Route: 048
  2. RESTAMIN                           /00000401/ [Concomitant]
     Active Substance: DIPHENHYDRAMINE
  3. FERRUM                             /00023501/ [Concomitant]
     Route: 048
  4. PROMAC                             /01312301/ [Concomitant]
     Active Substance: POLAPREZINC
     Dosage: UNK
     Route: 048
  5. PACLITAXEL. [Concomitant]
     Active Substance: PACLITAXEL
     Indication: ADENOCARCINOMA GASTRIC
     Dosage: 110 MG, UNK
     Route: 042
     Dates: start: 201507, end: 201511
  6. GASMOTIN [Concomitant]
     Active Substance: MOSAPRIDE CITRATE
     Route: 048
  7. ULCERLMIN [Concomitant]
     Active Substance: SUCRALFATE
     Route: 048
  8. FOIPAN [Concomitant]
     Active Substance: CAMOSTAT MESYLATE
     Route: 048
  9. CYRAMZA [Suspect]
     Active Substance: RAMUCIRUMAB
     Indication: ADENOCARCINOMA GASTRIC
     Dosage: 350 MG, OTHER
     Route: 042
     Dates: start: 201511, end: 20160310
  10. LANSOPRAZOLE. [Concomitant]
     Active Substance: LANSOPRAZOLE
  11. NOVAMIN                            /00013301/ [Concomitant]
     Active Substance: PROCHLORPERAZINE
  12. LYRICA [Concomitant]
     Active Substance: PREGABALIN
     Route: 048
  13. PACLITAXEL. [Concomitant]
     Active Substance: PACLITAXEL
     Dosage: 110 MG, OTHER
     Route: 042
     Dates: start: 201511
  14. GOSHAJINKIGAN [Concomitant]
     Active Substance: HERBALS
     Route: 048

REACTIONS (1)
  - Peripheral artery aneurysm [Not Recovered/Not Resolved]

NARRATIVE: CASE EVENT DATE: 201603
